FAERS Safety Report 25963287 (Version 1)
Quarter: 2025Q4

REPORT INFORMATION
  Report Type: Report from Study
  Country: UY (occurrence: UY)
  Receive Date: 20251027
  Receipt Date: 20251027
  Transmission Date: 20260118
  Serious: Yes (Other)
  Sender: ABBVIE
  Company Number: UY-ABBVIE-6517561

PATIENT
  Age: 48 Year
  Sex: Female

DRUGS (2)
  1. FENOFIBRATE [Suspect]
     Active Substance: FENOFIBRATE
     Indication: Primary biliary cholangitis
     Dosage: 160 200 MG
     Route: 048
  2. URSODIOL [Suspect]
     Active Substance: URSODIOL
     Indication: Primary biliary cholangitis
     Dosage: 13 15 MG/KG
     Route: 048

REACTIONS (2)
  - Hepatotoxicity [Unknown]
  - Blood alkaline phosphatase increased [Unknown]
